FAERS Safety Report 20143673 (Version 1)
Quarter: 2021Q4

REPORT INFORMATION
  Report Type: Report from Study
  Country: GB (occurrence: GB)
  Receive Date: 20211203
  Receipt Date: 20211203
  Transmission Date: 20220303
  Serious: Yes (Life-Threatening, Hospitalization, Disabling)
  Sender: FDA-Public Use
  Company Number: GB-CELLTRION INC.-2021GB016236

PATIENT

DRUGS (76)
  1. TRASTUZUMAB [Suspect]
     Active Substance: TRASTUZUMAB
     Indication: Breast cancer metastatic
     Dosage: (08/08/16 TO 30/08/16 420 MG) 798MG LOADING THEN 609MG
     Route: 041
     Dates: start: 20160718, end: 20160830
  2. TRASTUZUMAB [Suspect]
     Active Substance: TRASTUZUMAB
     Dosage: 588 MG, PER 1 MONTH
     Route: 042
     Dates: start: 20160808, end: 20160808
  3. TRASTUZUMAB [Suspect]
     Active Substance: TRASTUZUMAB
     Dosage: 609 MG, PER 1 MONTH
     Route: 042
     Dates: start: 20160830, end: 20160830
  4. TRASTUZUMAB [Suspect]
     Active Substance: TRASTUZUMAB
     Dosage: LOADING
     Route: 042
  5. DOCETAXEL [Suspect]
     Active Substance: DOCETAXEL
     Indication: Breast cancer metastatic
     Dosage: 160 MG
     Route: 042
     Dates: start: 20160718, end: 20160830
  6. DOCETAXEL [Suspect]
     Active Substance: DOCETAXEL
     Dosage: 160 MG, PER 1 MONTH
     Route: 042
     Dates: start: 20160808
  7. DOCETAXEL [Suspect]
     Active Substance: DOCETAXEL
     Dosage: 160 MG, PER 1 MONTH
     Route: 042
     Dates: start: 20160808
  8. DOCETAXEL [Suspect]
     Active Substance: DOCETAXEL
     Dosage: 164 MG, PER 1 MONTH (PHARMACEUTICAL DOSE FORM: VIAL)
     Route: 042
     Dates: start: 20160830
  9. DOXYCYCLINE [Suspect]
     Active Substance: DOXYCYCLINE
     Indication: Breast cancer metastatic
     Dosage: 160 MG, PER 1 MONTH
     Route: 042
     Dates: start: 20160708
  10. DOXYCYCLINE [Suspect]
     Active Substance: DOXYCYCLINE
     Dosage: 160 MG, PER 1 MONTH
     Route: 042
     Dates: start: 20160718
  11. DOXYCYCLINE [Suspect]
     Active Substance: DOXYCYCLINE
     Dosage: 164 MG, PER 1 MONTH
     Route: 042
     Dates: start: 20160830
  12. PERTUZUMAB [Suspect]
     Active Substance: PERTUZUMAB
     Indication: Breast cancer metastatic
     Dosage: 840MG FIRST DOSE THEN 420MG
     Route: 042
     Dates: start: 20160718, end: 20160830
  13. PERTUZUMAB [Suspect]
     Active Substance: PERTUZUMAB
     Dosage: 840MG FIRST DOSE THEN 420MG
     Route: 042
     Dates: start: 20160808, end: 20160830
  14. PERTUZUMAB [Suspect]
     Active Substance: PERTUZUMAB
     Dosage: MONTHLY, 840MG FIRST DOSE THEN 420MG
     Route: 042
  15. DANAPAROID [Concomitant]
     Active Substance: DANAPAROID
  16. TRANEXAMIC ACID [Concomitant]
     Active Substance: TRANEXAMIC ACID
  17. NOREPINEPHRINE [Concomitant]
     Active Substance: NOREPINEPHRINE
  18. OXYCODONE HYDROCHLORIDE [Concomitant]
     Active Substance: OXYCODONE HYDROCHLORIDE
     Indication: Pain
  19. CALCIUM GLUCONATE [Concomitant]
     Active Substance: CALCIUM GLUCONATE
     Indication: Colitis ischaemic
  20. MAGNASPARTATE [Concomitant]
     Indication: Blood magnesium decreased
     Dosage: 10 MMOL
     Route: 065
     Dates: start: 20160908
  21. BONJELA [CETALKONIUM CHLORIDE;CHOLINE SALICYLATE] [Concomitant]
     Indication: Neutropenic sepsis
  22. MORPHINE [Concomitant]
     Active Substance: MORPHINE
  23. VASOPRESSIN [Concomitant]
     Active Substance: VASOPRESSIN
     Indication: Neutropenic sepsis
  24. TEICOPLANIN [Concomitant]
     Active Substance: TEICOPLANIN
     Indication: Colitis ischaemic
  25. ORAMORPH SR SUSTAINED RELEASE [Concomitant]
     Active Substance: MORPHINE SULFATE
  26. DIHYDROCODEINE [Concomitant]
     Active Substance: DIHYDROCODEINE
     Indication: Pain
     Dosage: 30 MG
     Route: 048
     Dates: start: 20160908
  27. TINZAPARIN [Concomitant]
     Active Substance: TINZAPARIN
  28. OMEPRAZOLE [Concomitant]
     Active Substance: OMEPRAZOLE
     Indication: Colitis ischaemic
  29. POTASSIUM BICARBONATE\POTASSIUM CHLORIDE [Concomitant]
     Active Substance: POTASSIUM BICARBONATE\POTASSIUM CHLORIDE
     Indication: Acute kidney injury
  30. SANDOCAL 1000 [Concomitant]
     Indication: Acute kidney injury
  31. MAGNESIUM SULFATE [Concomitant]
     Active Substance: MAGNESIUM SULFATE
  32. DEXTROSE [Concomitant]
     Active Substance: DEXTROSE
     Indication: Neutropenic sepsis
  33. FLUCONAZOLE [Concomitant]
     Active Substance: FLUCONAZOLE
     Indication: Neutropenic sepsis
  34. METOCLOPRAMIDE [Concomitant]
     Active Substance: METOCLOPRAMIDE
     Indication: Colitis ischaemic
  35. DIAZEPAM [Concomitant]
     Active Substance: DIAZEPAM
     Indication: Colitis ischaemic
  36. POTASSIUM BICARBONATE [Concomitant]
     Active Substance: POTASSIUM BICARBONATE
  37. BUTYLSCOPOLAMINE BROMIDE [Concomitant]
     Active Substance: BUTYLSCOPOLAMINE BROMIDE
     Indication: Colitis ischaemic
  38. BISOPROLOL [Concomitant]
     Active Substance: BISOPROLOL
     Indication: Acute kidney injury
  39. ALFENTANIL [Concomitant]
     Active Substance: ALFENTANIL
     Indication: Product used for unknown indication
     Dosage: UNK
  40. CODEINE [Concomitant]
     Active Substance: CODEINE
  41. RAMIPRIL [Concomitant]
     Active Substance: RAMIPRIL
     Indication: Acute kidney injury
  42. HYDROCORTISONE [Concomitant]
     Active Substance: HYDROCORTISONE
     Indication: Neutropenic sepsis
  43. CHLORHEXIDINE HYDROCHLORIDE\NEOMYCIN SULFATE [Concomitant]
     Active Substance: CHLORHEXIDINE HYDROCHLORIDE\NEOMYCIN SULFATE
  44. FLUCLOXACILLIN [Concomitant]
     Active Substance: FLUCLOXACILLIN
  45. LEVOMEPROMAZINE [Concomitant]
     Active Substance: LEVOMEPROMAZINE
  46. LOPERAMIDE [Concomitant]
     Active Substance: LOPERAMIDE
     Indication: Diarrhoea
     Dosage: UP TO 4 TIMES A DAY IF NEEDED FOR LOOSE
     Route: 048
     Dates: start: 20161230
  47. SODIUM CITRATE [Concomitant]
     Active Substance: SODIUM CITRATE
     Indication: Diarrhoea
  48. DEXTROSE [Concomitant]
     Active Substance: DEXTROSE
  49. TAUROLIDINE [Concomitant]
     Active Substance: TAUROLIDINE
  50. ACETAMINOPHEN [Concomitant]
     Active Substance: ACETAMINOPHEN
     Indication: Pain
     Dosage: 1 G
     Route: 048
     Dates: start: 20160908
  51. MEROPENEM [Concomitant]
     Active Substance: MEROPENEM
  52. TAUROLIDINE [Concomitant]
     Active Substance: TAUROLIDINE
  53. ZOPICLONE [Concomitant]
     Active Substance: ZOPICLONE
  54. SODIUM LACTATE [Concomitant]
     Active Substance: SODIUM LACTATE
  55. TOLTERODINE [Concomitant]
     Active Substance: TOLTERODINE
     Indication: Acute kidney injury
  56. EPOPROSTENOL [Concomitant]
     Active Substance: EPOPROSTENOL
     Indication: Acute kidney injury
  57. METRONIDAZOLE [Concomitant]
     Active Substance: METRONIDAZOLE
     Indication: Colitis ischaemic
  58. CYCLIZINE [Concomitant]
     Active Substance: CYCLIZINE
     Indication: Nausea
     Dosage: 50 MG, AS NEEDED
     Route: 048
     Dates: start: 20160908
  59. CHLORHEXIDINE [Concomitant]
     Active Substance: CHLORHEXIDINE
     Indication: Colitis ischaemic
  60. DALTEPARIN [Concomitant]
     Active Substance: DALTEPARIN
     Indication: Acute kidney injury
  61. CALCIUM CHLORIDE [Concomitant]
     Active Substance: CALCIUM CHLORIDE
  62. POTASSIUM CHLORIDE [Concomitant]
     Active Substance: POTASSIUM CHLORIDE
  63. PIPERACILLIN SODIUM\TAZOBACTAM SODIUM [Concomitant]
     Active Substance: PIPERACILLIN SODIUM\TAZOBACTAM SODIUM
     Indication: Neutropenic sepsis
  64. METARAMINOL [Concomitant]
     Active Substance: METARAMINOL
     Indication: Colitis ischaemic
  65. DOXYCYCLINE [Concomitant]
     Active Substance: DOXYCYCLINE
     Dosage: 100 MG
     Route: 048
     Dates: start: 20160803, end: 20160821
  66. MAGNESIUM ASPARTATE [Concomitant]
     Active Substance: MAGNESIUM ASPARTATE
  67. NOREPINEPHRINE [Concomitant]
     Active Substance: NOREPINEPHRINE
  68. FONDAPARINUX [Concomitant]
     Active Substance: FONDAPARINUX
     Indication: Colitis ischaemic
  69. CIPROFLOXACIN [Concomitant]
     Active Substance: CIPROFLOXACIN
     Indication: Neutropenic sepsis
  70. MIDAZOLAM [Concomitant]
     Active Substance: MIDAZOLAM
     Indication: Colitis ischaemic
  71. HARTMANS [Concomitant]
     Indication: Neutropenic sepsis
  72. GLUCOGEL [Concomitant]
  73. MORPHINE SULFATE [Concomitant]
     Active Substance: MORPHINE SULFATE
  74. NITROGLYCERIN [Concomitant]
     Active Substance: NITROGLYCERIN
  75. CITALOPRAM [Concomitant]
     Active Substance: CITALOPRAM HYDROBROMIDE
     Indication: Depression
     Dosage: 20 MG, PER 1 DAY
     Route: 048
     Dates: start: 20160921
  76. ONDANSETRON [Concomitant]
     Active Substance: ONDANSETRON
     Indication: Nausea
     Dosage: 4 MG
     Route: 048
     Dates: start: 20160908

REACTIONS (9)
  - Colitis [Recovering/Resolving]
  - Acute kidney injury [Recovered/Resolved]
  - Colitis ischaemic [Not Recovered/Not Resolved]
  - Pneumonia [Recovered/Resolved]
  - Neutropenic sepsis [Recovered/Resolved]
  - Abdominal pain [Recovered/Resolved with Sequelae]
  - Vomiting [Recovered/Resolved with Sequelae]
  - Off label use [Unknown]
  - Overdose [Unknown]

NARRATIVE: CASE EVENT DATE: 20160907
